FAERS Safety Report 7309314-9 (Version None)
Quarter: 2011Q1

REPORT INFORMATION
  Report Type: 
  Country: None (occurrence: None)
  Receive Date: 20110223
  Receipt Date: 20110210
  Transmission Date: 20110831
  Serious: Yes (Hospitalization, Other)
  Sender: FDA-Public Use
  Company Number: US-ELI_LILLY_AND_COMPANY-US201101000417

PATIENT
  Sex: Female

DRUGS (5)
  1. FORTEO [Suspect]
     Dosage: 20 UG, QOD
  2. FORTEO [Suspect]
     Indication: OSTEOPOROSIS
     Dosage: 20 UG, DAILY (1/D)
     Route: 065
     Dates: start: 20100301
  3. LISINOPRIL [Concomitant]
     Dosage: 10 MG, DAILY (1/D)
     Route: 065
  4. VITAMIN D [Concomitant]
     Dosage: UNK, UNKNOWN
     Route: 065
     Dates: start: 20100301
  5. ARIMIDEX [Concomitant]
     Dosage: UNK, UNKNOWN
     Route: 065

REACTIONS (17)
  - ASTHENIA [None]
  - VITAMIN D ABNORMAL [None]
  - HYPERVITAMINOSIS [None]
  - DIARRHOEA [None]
  - FEELING ABNORMAL [None]
  - OEDEMA PERIPHERAL [None]
  - VOMITING PROJECTILE [None]
  - BLOOD POTASSIUM DECREASED [None]
  - WEIGHT DECREASED [None]
  - GAIT DISTURBANCE [None]
  - ABDOMINAL DISCOMFORT [None]
  - DRUG DOSE OMISSION [None]
  - DEHYDRATION [None]
  - APHAGIA [None]
  - ARTHRALGIA [None]
  - BLOOD CALCIUM INCREASED [None]
  - ERUCTATION [None]
